FAERS Safety Report 7464131-4 (Version None)
Quarter: 2011Q2

REPORT INFORMATION
  Report Type: 
  Country: None (occurrence: None)
  Receive Date: 20110506
  Receipt Date: 20101021
  Transmission Date: 20111010
  Serious: No
  Sender: FDA-Public Use
  Company Number: US-AMGEN-TCS439545

PATIENT
  Age: 31 Year
  Sex: Male
  Weight: 108.39 kg

DRUGS (4)
  1. ITRACONAZOLE [Concomitant]
     Dosage: 200 MG, BID
     Dates: start: 20100831
  2. ENBREL [Suspect]
     Indication: PSORIASIS
     Dosage: 50 MG, 2 TIMES/WK
     Route: 058
     Dates: start: 20100831
  3. METHOTREXATE [Concomitant]
     Dosage: 2.5 MG, UNK
     Dates: start: 20100601
  4. BUPROPION [Concomitant]
     Dosage: 150 MG, QD
     Dates: start: 20100831

REACTIONS (11)
  - INSOMNIA [None]
  - NASOPHARYNGITIS [None]
  - FATIGUE [None]
  - HAEMATOSPERMIA [None]
  - DERMATITIS [None]
  - ABDOMINAL DISTENSION [None]
  - DYSURIA [None]
  - DYSPNOEA [None]
  - HUNGER [None]
  - CHEST PAIN [None]
  - NECK PAIN [None]
